FAERS Safety Report 24887687 (Version 1)
Quarter: 2025Q1

REPORT INFORMATION
  Report Type: Spontaneous
  Country: CH (occurrence: CH)
  Receive Date: 20250127
  Receipt Date: 20250127
  Transmission Date: 20250409
  Serious: Yes (Death, Hospitalization, Other)
  Sender: ALEXION PHARMACEUTICALS
  Company Number: CH-ASTRAZENECA-202411CHE005106CH

PATIENT
  Weight: 70 kg

DRUGS (11)
  1. IMJUDO [Suspect]
     Active Substance: TREMELIMUMAB\TREMELIMUMAB-ACTL
  2. IMFINZI [Suspect]
     Active Substance: DURVALUMAB
  3. DAPAGLIFLOZIN [Concomitant]
     Active Substance: DAPAGLIFLOZIN
  4. DOXAZOSIN [Concomitant]
     Active Substance: DOXAZOSIN MESYLATE
  5. CARVEDILOL [Concomitant]
     Active Substance: CARVEDILOL
  6. LEVETIRACETAM [Concomitant]
     Active Substance: LEVETIRACETAM
  7. GABAPENTIN [Concomitant]
     Active Substance: GABAPENTIN
  8. RIFAXIMIN [Concomitant]
     Active Substance: RIFAXIMIN
  9. PANTOPRAZOLE SODIUM [Concomitant]
     Active Substance: PANTOPRAZOLE SODIUM
  10. LACTULOSE [Concomitant]
     Active Substance: LACTULOSE
  11. INSULIN NOS [Concomitant]
     Active Substance: INSULIN NOS

REACTIONS (2)
  - Colitis [Recovered/Resolved]
  - Cardiac failure [Fatal]
